FAERS Safety Report 6129841-X (Version None)
Quarter: 2009Q1

REPORT INFORMATION
  Report Type: 
  Country: None (occurrence: None)
  Receive Date: 20090323
  Receipt Date: 20090323
  Transmission Date: 20090719
  Serious: Yes (Other)
  Sender: FDA-Public Use
  Company Number: None

PATIENT
  Age: 16 Year
  Sex: Female
  Weight: 45.3597 kg

DRUGS (1)
  1. CREST PRO-HEALTH RINSE PROCTER + GAMBLE [Suspect]
     Indication: DENTAL DISORDER PROPHYLAXIS
     Dosage: 1 TSP DAILY DENTAL
     Route: 004
     Dates: start: 20081201, end: 20090321

REACTIONS (1)
  - TOOTH DISCOLOURATION [None]
